FAERS Safety Report 18951358 (Version 2)
Quarter: 2021Q1

REPORT INFORMATION
  Report Type: Report from Study
  Country: None (occurrence: CA)
  Receive Date: 20210301
  Receipt Date: 20210323
  Transmission Date: 20210420
  Serious: Yes (Other)
  Sender: FDA-Public Use
  Company Number: CA-ABBVIE-20K-028-3664514-00

PATIENT
  Sex: Female

DRUGS (5)
  1. HYDROXYCHLOROQUINE [Concomitant]
     Active Substance: HYDROXYCHLOROQUINE
     Indication: PRODUCT USED FOR UNKNOWN INDICATION
     Dates: end: 20201106
  2. RINVOQ [Suspect]
     Active Substance: UPADACITINIB
     Route: 048
     Dates: start: 20210211
  3. RINVOQ [Suspect]
     Active Substance: UPADACITINIB
     Indication: PRODUCT USED FOR UNKNOWN INDICATION
     Route: 048
     Dates: start: 20200903, end: 20210202
  4. LEFLUNOMIDE. [Concomitant]
     Active Substance: LEFLUNOMIDE
     Indication: PRODUCT USED FOR UNKNOWN INDICATION
     Route: 065
  5. PREDNISONE. [Concomitant]
     Active Substance: PREDNISONE
     Indication: PRODUCT USED FOR UNKNOWN INDICATION
     Route: 065

REACTIONS (20)
  - Musculoskeletal disorder [Unknown]
  - Nerve compression [Unknown]
  - Exostosis [Unknown]
  - Headache [Unknown]
  - Gait inability [Unknown]
  - Frustration tolerance decreased [Unknown]
  - Muscle disorder [Unknown]
  - Intervertebral disc protrusion [Unknown]
  - Poor quality sleep [Unknown]
  - Arthralgia [Unknown]
  - Arthralgia [Recovered/Resolved]
  - Fibromyalgia [Unknown]
  - Neuralgia [Not Recovered/Not Resolved]
  - Malaise [Unknown]
  - Depression [Unknown]
  - Exostosis [Recovering/Resolving]
  - Diabetes mellitus [Unknown]
  - Hypoaesthesia [Unknown]
  - Spinal disorder [Unknown]
  - Blood cholesterol increased [Unknown]

NARRATIVE: CASE EVENT DATE: 2020
